FAERS Safety Report 7969927-8 (Version None)
Quarter: 2011Q4

REPORT INFORMATION
  Report Type: 
  Country: None (occurrence: None)
  Receive Date: 20111212
  Receipt Date: 20111202
  Transmission Date: 20120403
  Serious: Yes (Hospitalization)
  Sender: FDA-Public Use
  Company Number: IT-BRISTOL-MYERS SQUIBB COMPANY-16252173

PATIENT
  Age: 44 Year
  Sex: Female

DRUGS (4)
  1. IPILIMUMAB [Suspect]
     Indication: MALIGNANT MELANOMA
     Dosage: VIAL NO:263053,263851,263856,263858,212211,212212,212213,212214
     Route: 042
     Dates: start: 20110825, end: 20111006
  2. PHENOBARBITAL TAB [Concomitant]
     Dates: start: 20110802
  3. POLYETHYLENE GLYCOL [Concomitant]
     Dates: start: 20111018, end: 20111109
  4. SERTRALINE HYDROCHLORIDE [Concomitant]
     Dates: start: 20110220

REACTIONS (5)
  - BACK PAIN [None]
  - HEADACHE [None]
  - VOMITING [None]
  - NAUSEA [None]
  - FATIGUE [None]
